FAERS Safety Report 12213511 (Version 1)
Quarter: 2016Q1

REPORT INFORMATION
  Report Type: Report from Study
  Country: US (occurrence: US)
  Receive Date: 20160328
  Receipt Date: 20160328
  Transmission Date: 20160526
  Serious: Yes (Disabling)
  Sender: FDA-Public Use
  Company Number: US-ROCHE-1278036

PATIENT
  Sex: Male

DRUGS (3)
  1. ERIVEDGE [Suspect]
     Active Substance: VISMODEGIB
     Indication: SQUAMOUS CELL CARCINOMA OF SKIN
     Route: 048
  2. FLOMAX [Concomitant]
     Active Substance: TAMSULOSIN HYDROCHLORIDE
     Route: 065
  3. ERIVEDGE [Suspect]
     Active Substance: VISMODEGIB
     Indication: BASAL CELL CARCINOMA
     Route: 048

REACTIONS (12)
  - Dysgeusia [Unknown]
  - Alopecia [Unknown]
  - Skin ulcer [Unknown]
  - Exophthalmos [Unknown]
  - Drug ineffective [Unknown]
  - Blindness unilateral [Unknown]
  - Disease progression [Unknown]
  - Tumour haemorrhage [Unknown]
  - Wound complication [Unknown]
  - Basal cell carcinoma [Unknown]
  - Myalgia [Unknown]
  - Influenza [Unknown]
